FAERS Safety Report 6091422-4 (Version None)
Quarter: 2009Q1

REPORT INFORMATION
  Report Type: 
  Country: None (occurrence: None)
  Receive Date: 20090219
  Receipt Date: 20090219
  Transmission Date: 20090719
  Serious: No
  Sender: FDA-Public Use
  Company Number: None

PATIENT
  Sex: Female
  Weight: 105.2345 kg

DRUGS (10)
  1. CHANTIX [Suspect]
     Dosage: I MG BID PO
     Route: 048
  2. CLONIDINE [Concomitant]
  3. CITALOPRAM [Concomitant]
  4. CLOZAPINE [Concomitant]
  5. DESMOPRESSIN ACETATE [Concomitant]
  6. FENOFIBRATE [Concomitant]
  7. HALDOL [Concomitant]
  8. LAMICTAL [Concomitant]
  9. LORAZEPAM [Concomitant]
  10. SIMVASTATIN [Concomitant]

REACTIONS (4)
  - AFFECTIVE DISORDER [None]
  - CRYING [None]
  - DEPRESSED MOOD [None]
  - SUICIDAL IDEATION [None]
